FAERS Safety Report 7276283-X (Version None)
Quarter: 2011Q1

REPORT INFORMATION
  Report Type: 
  Country: None (occurrence: None)
  Receive Date: 20110204
  Receipt Date: 20110128
  Transmission Date: 20110831
  Serious: Yes (Hospitalization)
  Sender: FDA-Public Use
  Company Number: US-US-EMD SERONO, INC.-7039114

PATIENT
  Sex: Male

DRUGS (5)
  1. EXFORGE [Concomitant]
     Indication: HYPERTENSION
  2. LOVAZA [Concomitant]
  3. REBIF [Suspect]
     Indication: MULTIPLE SCLEROSIS
     Route: 058
     Dates: start: 20100915
  4. OXCARBAZEPINE [Concomitant]
     Indication: CONVULSION
  5. SIMVASTATIN [Concomitant]
     Indication: HYPERLIPIDAEMIA

REACTIONS (11)
  - RHINORRHOEA [None]
  - INSOMNIA [None]
  - CONSTIPATION [None]
  - MUSCULAR WEAKNESS [None]
  - HYPOAESTHESIA [None]
  - MYALGIA [None]
  - INFLUENZA [None]
  - ABDOMINAL PAIN [None]
  - FATIGUE [None]
  - DYSPHONIA [None]
  - FEELING ABNORMAL [None]
